FAERS Safety Report 8537351 (Version 3)
Quarter: 2018Q3

REPORT INFORMATION
  Report Type: Spontaneous
  Country: FR (occurrence: FR)
  Receive Date: 20120430
  Receipt Date: 20180731
  Transmission Date: 20181010
  Serious: Yes (Hospitalization, Other)
  Sender: FDA-Public Use
  Company Number: PHHY2012FR034292

PATIENT
  Age: 65 Year
  Sex: Male
  Weight: 73 kg

DRUGS (2)
  1. PARACETAMOL [Suspect]
     Active Substance: ACETAMINOPHEN
     Indication: PRODUCT USED FOR UNKNOWN INDICATION
     Dosage: 10 G, DAILY
     Route: 048
     Dates: start: 1970
  2. CODEINE PHOSPHATE [Suspect]
     Active Substance: CODEINE PHOSPHATE
     Indication: PRODUCT USED FOR UNKNOWN INDICATION
     Dosage: 0.6 G, QD
     Route: 048
     Dates: start: 1970

REACTIONS (5)
  - Intentional product misuse [Unknown]
  - Drug abuse [Unknown]
  - Hypertension [Not Recovered/Not Resolved]
  - Drug dependence [Unknown]
  - Intentional overdose [Unknown]
